FAERS Safety Report 8211459-6 (Version None)
Quarter: 2012Q1

REPORT INFORMATION
  Report Type: 
  Country: None (occurrence: None)
  Receive Date: 20120315
  Receipt Date: 20120307
  Transmission Date: 20120608
  Serious: Yes (Other)
  Sender: FDA-Public Use
  Company Number: BR-SANOFI-AVENTIS-2012SA015554

PATIENT
  Sex: Female

DRUGS (2)
  1. LANTUS [Suspect]
     Route: 065
     Dates: start: 20100101
  2. AUTOPEN 24 [Concomitant]
     Indication: DEVICE THERAPY
     Dates: start: 20100101

REACTIONS (1)
  - RETINAL HAEMORRHAGE [None]
